FAERS Safety Report 25766844 (Version 1)
Quarter: 2025Q3

REPORT INFORMATION
  Report Type: Spontaneous
  Country: US (occurrence: US)
  Receive Date: 20250905
  Receipt Date: 20250905
  Transmission Date: 20251021
  Serious: No
  Sender: ADMA BIOLOGICS
  Company Number: US-ADMA BIOLOGICS INC.-US-2025ADM000256

PATIENT
  Age: 41 Year
  Sex: Female

DRUGS (3)
  1. BIVIGAM [Suspect]
     Active Substance: HUMAN IMMUNOGLOBULIN G
     Indication: Immunodeficiency common variable
     Route: 042
  2. BIVIGAM [Suspect]
     Active Substance: HUMAN IMMUNOGLOBULIN G
     Route: 042
     Dates: start: 20250819, end: 20250819
  3. SOLU-MEDROL [Concomitant]
     Active Substance: METHYLPREDNISOLONE SODIUM SUCCINATE
     Indication: Premedication
     Route: 065
     Dates: start: 20250819, end: 20250819

REACTIONS (3)
  - Urticaria [Recovered/Resolved]
  - Swelling face [Recovered/Resolved]
  - Pruritus [Recovered/Resolved]

NARRATIVE: CASE EVENT DATE: 20250819
